FAERS Safety Report 9075504 (Version 1)
Quarter: 2013Q1

REPORT INFORMATION
  Report Type: Report from Study
  Country: US (occurrence: US)
  Receive Date: 20130129
  Receipt Date: 20130129
  Transmission Date: 20140127
  Serious: No
  Sender: FDA-Public Use
  Company Number: US-ABBOTT-12P-163-0940304-00

PATIENT
  Age: 62 Year
  Sex: Female

DRUGS (23)
  1. HUMIRA 40 MG/0.8 ML PEN [Suspect]
     Indication: PSORIATIC ARTHROPATHY
     Dates: start: 20120503
  2. DESONIDE [Concomitant]
     Indication: PSORIASIS
  3. X-VIATE [Concomitant]
     Indication: PRODUCT USED FOR UNKNOWN INDICATION
     Dosage: IN MORNING DAILY
  4. ISRADIPINE [Concomitant]
     Indication: PRODUCT USED FOR UNKNOWN INDICATION
  5. TRANDOLAPRIL [Concomitant]
     Indication: PRODUCT USED FOR UNKNOWN INDICATION
     Dosage: 4MG DAILY
  6. HYDROCHLOROTHIAZIDE [Concomitant]
     Indication: PRODUCT USED FOR UNKNOWN INDICATION
     Dosage: 25MG DAILY
  7. CARVEDILOL [Concomitant]
     Indication: HYPERTENSION
     Dosage: 6.25MG DAILY
  8. POTASSIUM CHLORIDE [Concomitant]
     Indication: MINERAL SUPPLEMENTATION
     Dosage: 2 CAP DAILY
  9. DOXEPIN HCL [Concomitant]
     Indication: DEPRESSION
     Dosage: 75MG DAILY
  10. DOXEPIN HCL [Concomitant]
     Indication: PRURITUS
  11. VENLAFAXINE HYDROCHLORIDE [Concomitant]
     Indication: PRODUCT USED FOR UNKNOWN INDICATION
     Dosage: 225MG DAILY
  12. OLANZAPINE [Concomitant]
     Indication: DEPRESSION
     Dosage: 10MG DAILY
  13. MENEST [Concomitant]
     Indication: HORMONE REPLACEMENT THERAPY
     Dosage: .625MG DAILY
  14. OSCAL [Concomitant]
     Indication: MINERAL SUPPLEMENTATION
  15. VITAMIN D3 [Concomitant]
     Indication: VITAMIN SUPPLEMENTATION
  16. CELEBREX [Concomitant]
     Indication: ARTHRITIS
     Dosage: 200MG DAILY
  17. ASA [Concomitant]
     Indication: CARDIOVASCULAR EVENT PROPHYLAXIS
     Dosage: 81MG DAILY
  18. SIMVASTATIN [Concomitant]
     Indication: BLOOD CHOLESTEROL INCREASED
     Dosage: 80MG DAILY
  19. VESICARE [Concomitant]
     Indication: INCONTINENCE
     Dosage: 5MG DAILY
  20. METFORMIN [Concomitant]
     Indication: TYPE 2 DIABETES MELLITUS
  21. FUROSEMIDE [Concomitant]
     Indication: OEDEMA PERIPHERAL
  22. METRAZOL [Concomitant]
     Indication: GASTROOESOPHAGEAL REFLUX DISEASE
     Dosage: 40-110 DAILY
  23. METRAZOL [Concomitant]
     Indication: GASTROOESOPHAGEAL REFLUX DISEASE
     Dosage: 40MG IN MORNING

REACTIONS (1)
  - Constipation [Not Recovered/Not Resolved]
